FAERS Safety Report 13483785 (Version 1)
Quarter: 2017Q2

REPORT INFORMATION
  Report Type: Spontaneous
  Country: US (occurrence: US)
  Receive Date: 20170425
  Receipt Date: 20170425
  Transmission Date: 20170830
  Serious: Yes (Other)
  Sender: FDA-Public Use
  Company Number: None

PATIENT
  Age: 24 Year
  Sex: Male
  Weight: 74 kg

DRUGS (2)
  1. ISOTRETINOIN [Suspect]
     Active Substance: ISOTRETINOIN
     Indication: ACNE
  2. COD LIVER OIL [Concomitant]
     Active Substance: COD LIVER OIL

REACTIONS (5)
  - Drug monitoring procedure not performed [None]
  - Loss of libido [None]
  - Impaired quality of life [None]
  - Organic erectile dysfunction [None]
  - Male sexual dysfunction [None]

NARRATIVE: CASE EVENT DATE: 20080916
